FAERS Safety Report 6875424-3 (Version None)
Quarter: 2010Q2

REPORT INFORMATION
  Report Type: 
  Country: None (occurrence: None)
  Receive Date: 20100610
  Receipt Date: 20100318
  Transmission Date: 20101027
  Serious: No
  Sender: FDA-Public Use
  Company Number: 2010SP016704

PATIENT
  Age: 63 Year
  Sex: Male

DRUGS (11)
  1. SAPHRIS [Suspect]
     Indication: BIPOLAR DISORDER
     Dosage: 10 MG;BID
     Dates: start: 20091201, end: 20091208
  2. GLIPIZINE [Concomitant]
  3. METFORMIN HCL [Concomitant]
  4. FINASTERIDE [Concomitant]
  5. PROTONIX [Concomitant]
  6. RAMIPRIL [Concomitant]
  7. BENICAR [Concomitant]
  8. ACTOS [Concomitant]
  9. METOPROLOL TARTRATE [Concomitant]
  10. CADUET [Concomitant]
  11. PRISTIQ [Concomitant]

REACTIONS (5)
  - BLOOD GLUCOSE INCREASED [None]
  - DIZZINESS [None]
  - SOMNOLENCE [None]
  - THIRST [None]
  - VOMITING [None]
